FAERS Safety Report 8228330-6 (Version None)
Quarter: 2012Q1

REPORT INFORMATION
  Report Type: 
  Country: None (occurrence: None)
  Receive Date: 20120322
  Receipt Date: 20110928
  Transmission Date: 20120608
  Serious: No
  Sender: FDA-Public Use
  Company Number: US-BRISTOL-MYERS SQUIBB COMPANY-16107518

PATIENT
  Age: 40 Year
  Sex: Male

DRUGS (1)
  1. ERBITUX [Suspect]
     Dosage: NO OF TREATMENT:2
     Dates: start: 20110901

REACTIONS (5)
  - SKIN DISORDER [None]
  - COUGH [None]
  - FATIGUE [None]
  - RHINORRHOEA [None]
  - PAIN IN EXTREMITY [None]
